FAERS Safety Report 9025240 (Version 1)
Quarter: 2013Q1

REPORT INFORMATION
  Report Type: Report from Study
  Country: US (occurrence: US)
  Receive Date: 20130122
  Receipt Date: 20130122
  Transmission Date: 20140127
  Serious: Yes (Other)
  Sender: FDA-Public Use
  Company Number: US-ROCHE-1181818

PATIENT
  Sex: 0

DRUGS (3)
  1. GANCICLOVIR [Suspect]
     Indication: ACQUIRED IMMUNODEFICIENCY SYNDROME
     Route: 042
  2. GANCICLOVIR [Suspect]
     Indication: RETINITIS
     Dosage: MAINTENANCE THERAPY
     Route: 042
  3. GANCICLOVIR [Suspect]
     Indication: ANTIVIRAL PROPHYLAXIS

REACTIONS (1)
  - Drug resistance [Unknown]
